FAERS Safety Report 17130565 (Version 18)
Quarter: 2022Q4

REPORT INFORMATION
  Report Type: Report from Study
  Country: CN (occurrence: None)
  Receive Date: 20191209
  Receipt Date: 20221013
  Transmission Date: 20230113
  Serious: Yes (Hospitalization)
  Sender: FDA-Public Use
  Company Number: CN-ROCHE-2484890

PATIENT
  Age: 63 Year
  Sex: Female
  Weight: 45 kg

DRUGS (32)
  1. ATEZOLIZUMAB [Suspect]
     Active Substance: ATEZOLIZUMAB
     Indication: Non-small cell lung cancer
     Dosage: DATE OF LAST DOSE PRIOR TO ADVERSE EVENT ONSET: 06/NOV/2019
     Route: 041
     Dates: start: 20190703, end: 20191106
  2. METHYLPREDNISOLONE SODIUM SUCCINATE [Concomitant]
     Active Substance: METHYLPREDNISOLONE SODIUM SUCCINATE
     Dates: start: 20191124, end: 20191124
  3. METHYLPREDNISOLONE SODIUM SUCCINATE [Concomitant]
     Active Substance: METHYLPREDNISOLONE SODIUM SUCCINATE
     Dates: start: 20191125, end: 20191125
  4. METHYLPREDNISOLONE SODIUM SUCCINATE [Concomitant]
     Active Substance: METHYLPREDNISOLONE SODIUM SUCCINATE
     Dates: start: 20191126, end: 20191127
  5. METHYLPREDNISOLONE SODIUM SUCCINATE [Concomitant]
     Active Substance: METHYLPREDNISOLONE SODIUM SUCCINATE
     Dates: start: 20191128, end: 20191202
  6. METHYLPREDNISOLONE SODIUM SUCCINATE [Concomitant]
     Active Substance: METHYLPREDNISOLONE SODIUM SUCCINATE
     Dates: start: 20191203, end: 20191203
  7. AMBROXOL HYDROCHLORIDE [Concomitant]
     Active Substance: AMBROXOL HYDROCHLORIDE
     Dates: start: 20191124, end: 20191203
  8. POTASSIUM CHLORIDE [Concomitant]
     Active Substance: POTASSIUM CHLORIDE
     Dates: start: 20191111, end: 20191127
  9. POTASSIUM CHLORIDE [Concomitant]
     Active Substance: POTASSIUM CHLORIDE
     Dosage: SUSTAINED RELEASE
     Dates: start: 20191127
  10. POTASSIUM CHLORIDE [Concomitant]
     Active Substance: POTASSIUM CHLORIDE
     Dates: start: 20191124, end: 20191124
  11. POTASSIUM CHLORIDE [Concomitant]
     Active Substance: POTASSIUM CHLORIDE
     Dates: start: 20191124, end: 20191127
  12. POTASSIUM CHLORIDE [Concomitant]
     Active Substance: POTASSIUM CHLORIDE
     Dates: start: 20191127
  13. CALCIUM CHLORIDE\POTASSIUM CHLORIDE\SODIUM CHLORIDE [Concomitant]
     Active Substance: CALCIUM CHLORIDE\POTASSIUM CHLORIDE\SODIUM CHLORIDE
     Dates: start: 20191124, end: 20191124
  14. FUROSEMIDE [Concomitant]
     Active Substance: FUROSEMIDE
     Dates: start: 20191124, end: 20191124
  15. SODIUM BICARBONATE [Concomitant]
     Active Substance: SODIUM BICARBONATE
     Dates: start: 20191124, end: 20191124
  16. SODIUM BICARBONATE [Concomitant]
     Active Substance: SODIUM BICARBONATE
     Dates: start: 20191124, end: 20191201
  17. INDOMETHACIN [Concomitant]
     Active Substance: INDOMETHACIN
     Dates: start: 20191124, end: 20191124
  18. BUDESONIDE [Concomitant]
     Active Substance: BUDESONIDE
     Dates: start: 20191201, end: 20191201
  19. IPRATROPIUM BROMIDE [Concomitant]
     Active Substance: IPRATROPIUM BROMIDE
     Dates: start: 20191201, end: 20191201
  20. LACTOBACILLUS ACIDOPHILUS [Concomitant]
     Active Substance: LACTOBACILLUS ACIDOPHILUS
     Dates: start: 20191130, end: 20191201
  21. LACTULOSE [Concomitant]
     Active Substance: LACTULOSE
     Dosage: SOLUTION
     Route: 048
     Dates: start: 20191130, end: 20191201
  22. OMEPRAZOLE [Concomitant]
     Active Substance: OMEPRAZOLE
     Dosage: ENTERIC COATED PELLETS
     Dates: start: 20191203
  23. PREDNISONE ACETATE [Concomitant]
     Active Substance: PREDNISONE ACETATE
     Dates: start: 20191203
  24. CALCIUM CHLORIDE\POTASSIUM CHLORIDE\SODIUM CHLORIDE [Concomitant]
     Active Substance: CALCIUM CHLORIDE\POTASSIUM CHLORIDE\SODIUM CHLORIDE
     Dates: start: 20191124, end: 20191124
  25. HEPARIN CALCIUM [Concomitant]
     Active Substance: HEPARIN CALCIUM
     Dates: start: 20191217, end: 2019
  26. OMEPRAZOLE MAGNESIUM [Concomitant]
     Active Substance: OMEPRAZOLE MAGNESIUM
     Dates: start: 20200122, end: 2020
  27. METHOXYPHENAMINE [Concomitant]
     Active Substance: METHOXYPHENAMINE
     Dates: start: 20200122, end: 2020
  28. MEDROL [Concomitant]
     Active Substance: METHYLPREDNISOLONE
     Dates: start: 20200122, end: 2020
  29. AMIODARONE HYDROCHLORIDE [Concomitant]
     Active Substance: AMIODARONE HYDROCHLORIDE
     Dates: start: 20200122, end: 2020
  30. CELECOXIB [Concomitant]
     Active Substance: CELECOXIB
     Dates: start: 20191017, end: 2019
  31. CEFUROXIME AXETIL [Concomitant]
     Active Substance: CEFUROXIME AXETIL
     Dates: start: 20191104, end: 2019
  32. LEVOFLOXACIN HYDROCHLORIDE [Concomitant]
     Active Substance: LEVOFLOXACIN HYDROCHLORIDE
     Dosage: 6 DROPS
     Dates: start: 20191104, end: 2019

REACTIONS (6)
  - Myositis [Recovered/Resolved]
  - Thrombosis [Recovered/Resolved]
  - Immune-mediated hepatic disorder [Recovered/Resolved]
  - Immune-mediated myocarditis [Recovered/Resolved]
  - Hypothyroidism [Recovered/Resolved]
  - Dermatitis allergic [Recovered/Resolved]

NARRATIVE: CASE EVENT DATE: 20191124
